FAERS Safety Report 23880563 (Version 2)
Quarter: 2024Q2

REPORT INFORMATION
  Report Type: Spontaneous
  Country: JP (occurrence: JP)
  Receive Date: 20240521
  Receipt Date: 20240627
  Transmission Date: 20240716
  Serious: Yes (Hospitalization, Other)
  Sender: FDA-Public Use
  Company Number: JP-TAIHO-2024-004810

PATIENT
  Age: 65 Year
  Sex: Female
  Weight: 58 kg

DRUGS (7)
  1. ABRAXANE [Suspect]
     Active Substance: PACLITAXEL
     Indication: Pancreatic carcinoma metastatic
     Dosage: ON DAYS 1, 8, AND 15 OF EACH 28-DAY CYCLE?DAILY DOSE: 125 MILLIGRAM(S)/SQ. METER
     Route: 041
  2. ABRAXANE [Suspect]
     Active Substance: PACLITAXEL
     Dosage: 80% DOSE; ON DAYS 1, 8, AND 15 OF EACH 28-DAY CYCLE
     Route: 041
  3. GEMCITABINE HYDROCHLORIDE [Suspect]
     Active Substance: GEMCITABINE HYDROCHLORIDE
     Indication: Pancreatic carcinoma metastatic
     Dosage: ON DAYS 1, 8, AND 15 OF EACH 28-DAY CYCLE?DAILY DOSE: 1000 MILLIGRAM(S)/SQ. METER
     Route: 051
     Dates: start: 20150909
  4. GEMCITABINE HYDROCHLORIDE [Suspect]
     Active Substance: GEMCITABINE HYDROCHLORIDE
     Dosage: 80% DOSE; ON DAYS 1, 8, AND 15 OF EACH 28-DAY CYCLE
     Route: 051
  5. PALONOSETRON HYDROCHLORIDE [Concomitant]
     Active Substance: PALONOSETRON HYDROCHLORIDE
     Indication: Product used for unknown indication
     Dosage: ON DAYS 1, 8, AND 15 OF EACH 28-DAY CYCLE?DAILY DOSE: 0.75 MILLIGRAM(S)
     Route: 051
     Dates: start: 20150909
  6. DEXAMETHASONE [Concomitant]
     Active Substance: DEXAMETHASONE
     Indication: Product used for unknown indication
     Dosage: ON DAYS 1, 8, AND 15 OF EACH 28-DAY CYCLE?DAILY DOSE: 6.6 MILLIGRAM(S)
     Route: 051
     Dates: start: 20150909
  7. VONOPRAZAN [Concomitant]
     Active Substance: VONOPRAZAN
     Indication: Product used for unknown indication
     Route: 048

REACTIONS (7)
  - Hypophagia [Recovered/Resolved]
  - Neutrophil count decreased [Recovering/Resolving]
  - Constipation [Unknown]
  - Nausea [Unknown]
  - Mobility decreased [Recovered/Resolved]
  - Pyrexia [Unknown]
  - Pulmonary toxicity [Unknown]

NARRATIVE: CASE EVENT DATE: 20150901
